FAERS Safety Report 9335203 (Version 2)
Quarter: 2013Q2

REPORT INFORMATION
  Report Type: Report from Study
  Country: CI (occurrence: CI)
  Receive Date: 20130606
  Receipt Date: 20130613
  Transmission Date: 20140414
  Serious: Yes (Death, Congenital Anomaly)
  Sender: FDA-Public Use
  Company Number: CI-GILEAD-2013-0076415

PATIENT
  Sex: Male

DRUGS (3)
  1. EMTRICITABINE/TENOFOVIR DISOPROXIL FUMARATE [Suspect]
     Indication: HIV INFECTION
     Dosage: 500 MG, QD
     Route: 064
     Dates: start: 20120314
  2. LOPINAVIR [Suspect]
     Indication: HIV INFECTION
     Dosage: 200 MG, BID
     Route: 064
     Dates: start: 20120314
  3. RITONAVIR [Suspect]
     Indication: HIV INFECTION
     Dosage: 50 MG, BID
     Route: 064
     Dates: start: 20120314

REACTIONS (1)
  - Exomphalos [Fatal]
